FAERS Safety Report 6195563-2 (Version None)
Quarter: 2009Q2

REPORT INFORMATION
  Report Type: 
  Country: None (occurrence: None)
  Receive Date: 20090519
  Receipt Date: 20090512
  Transmission Date: 20091009
  Serious: Yes (Other)
  Sender: FDA-Public Use
  Company Number: PHBS2007BR16663

PATIENT
  Age: 40 Year
  Sex: Male
  Weight: 85 kg

DRUGS (1)
  1. CODATEN [Suspect]
     Indication: BACK PAIN
     Dosage: UNK, Q8H
     Route: 048
     Dates: start: 20070416

REACTIONS (14)
  - BLISTER [None]
  - BURNING SENSATION [None]
  - DERMATITIS BULLOUS [None]
  - DYSHIDROSIS [None]
  - FEELING HOT [None]
  - HYPERSENSITIVITY [None]
  - INJURY [None]
  - PAIN [None]
  - POISONING [None]
  - PRURITUS [None]
  - SCRATCH [None]
  - THYROID DISORDER [None]
  - TRAUMATIC HAEMATOMA [None]
  - WEIGHT INCREASED [None]
